FAERS Safety Report 9412862 (Version 1)
Quarter: 2013Q3

REPORT INFORMATION
  Report Type: Spontaneous
  Country: IT (occurrence: IT)
  Receive Date: 20130722
  Receipt Date: 20130722
  Transmission Date: 20140515
  Serious: Yes (Hospitalization)
  Sender: FDA-Public Use
  Company Number: PHHY2013IT076776

PATIENT
  Sex: Male

DRUGS (4)
  1. TAMSULOSIN [Suspect]
     Indication: BENIGN PROSTATIC HYPERPLASIA
     Dosage: 0.4 MG, QD
     Route: 048
     Dates: start: 20130101, end: 20130617
  2. CLOX [Concomitant]
     Dosage: 250 MG
  3. MIRAPEXIN [Concomitant]
     Dosage: 0.18 MG
  4. ESOMEPRAZOLE [Concomitant]

REACTIONS (3)
  - Multiple fractures [Unknown]
  - Orthostatic hypotension [Unknown]
  - Syncope [Unknown]
